FAERS Safety Report 5526491-0 (Version None)
Quarter: 2007Q4

REPORT INFORMATION
  Report Type: 
  Country: None (occurrence: None)
  Receive Date: 20071127
  Receipt Date: 20071113
  Transmission Date: 20080405
  Serious: Yes (Hospitalization, Other)
  Sender: FDA-Public Use
  Company Number: IT-AMGEN-UK232159

PATIENT
  Sex: Male

DRUGS (3)
  1. NEULASTA [Suspect]
     Indication: CHEMOTHERAPY
     Route: 058
     Dates: start: 20070516, end: 20070516
  2. CYTOSINE ARABINOSIDE [Concomitant]
     Route: 065
  3. IDARUBICIN HCL [Concomitant]
     Route: 065

REACTIONS (9)
  - ATELECTASIS [None]
  - HERPES SIMPLEX [None]
  - HYPOVENTILATION [None]
  - NEUTROPENIA [None]
  - PLEURAL DISORDER [None]
  - PSEUDOMONAS INFECTION [None]
  - PYREXIA [None]
  - STOMATITIS [None]
  - THROMBOCYTOPENIA [None]
